FAERS Safety Report 5226418-5 (Version None)
Quarter: 2006Q4

REPORT INFORMATION
  Report Type: 
  Country: None (occurrence: None)
  Receive Date: 20061201
  Receipt Date: 20060927
  Transmission Date: 20070319
  Serious: No
  Sender: FDA-Public Use
  Company Number: US200609007085

PATIENT
  Age: 36 Year
  Sex: Female

DRUGS (4)
  1. CYMBALTA [Suspect]
     Indication: PAIN
     Dosage: 30 MG
     Dates: start: 20060922
  2. REQUIP [Concomitant]
  3. WELLBUTRIN [Concomitant]
  4. FLUOXETINE HCL [Concomitant]

REACTIONS (4)
  - DYSPEPSIA [None]
  - GASTROOESOPHAGEAL REFLUX DISEASE [None]
  - HYPERGLYCAEMIA [None]
  - MIGRAINE [None]
